FAERS Safety Report 15471336 (Version 1)
Quarter: 2018Q4

REPORT INFORMATION
  Report Type: Spontaneous
  Country: US (occurrence: US)
  Receive Date: 20181006
  Receipt Date: 20181006
  Transmission Date: 20190205
  Serious: No
  Sender: FDA-Public Use
  Company Number: US-ANIPHARMA-2018-US-004957

PATIENT
  Age: 31 Year
  Sex: Male

DRUGS (2)
  1. ARIMIDEX [Suspect]
     Active Substance: ANASTROZOLE
     Indication: BREAST CANCER
  2. AROMASIN [Suspect]
     Active Substance: EXEMESTANE

REACTIONS (1)
  - Liver disorder [Unknown]
